FAERS Safety Report 5653320-7 (Version None)
Quarter: 2008Q1

REPORT INFORMATION
  Report Type: 
  Country: None (occurrence: None)
  Receive Date: 20080131
  Receipt Date: 20071227
  Transmission Date: 20080703
  Serious: No
  Sender: FDA-Public Use
  Company Number: US200710005639

PATIENT
  Age: 50 Year
  Sex: Female

DRUGS (8)
  1. BYETTA [Suspect]
     Indication: TYPE 2 DIABETES MELLITUS
     Dosage: 5 UG, 2/D, SUBCUTANEOUS; 10 UG, 2/D, SUBCUTANEOUS
     Route: 058
     Dates: start: 20070601, end: 20070701
  2. BYETTA [Suspect]
     Indication: TYPE 2 DIABETES MELLITUS
     Dosage: 5 UG, 2/D, SUBCUTANEOUS; 10 UG, 2/D, SUBCUTANEOUS
     Route: 058
     Dates: start: 20070701, end: 20071023
  3. EXENATIDE 10 MCG PEN, DISPOSABLE DEVICE (EXENATIDE PEN (10MCG)) PEN,DI [Concomitant]
  4. GLYBURIDE [Concomitant]
  5. LISINOPRIL [Concomitant]
  6. CARDIZEM [Concomitant]
  7. PREMARIN (ESTROGENS CONJUGATED, MEDROGESTONE) [Concomitant]
  8. METFORMIN HCL [Concomitant]

REACTIONS (2)
  - CELLULITIS [None]
  - RASH ERYTHEMATOUS [None]
